FAERS Safety Report 6699791-9 (Version None)
Quarter: 2010Q2

REPORT INFORMATION
  Report Type: 
  Country: None (occurrence: None)
  Receive Date: 20100428
  Receipt Date: 20100420
  Transmission Date: 20101027
  Serious: Yes (Other)
  Sender: FDA-Public Use
  Company Number: IN-TYCO HEALTHCARE/MALLINCKRODT-T201000951

PATIENT
  Age: 35 Year
  Sex: Male

DRUGS (2)
  1. SODIUM IODIDE I 131 [Suspect]
     Dosage: 1890 MBQ, UNK
     Dates: start: 19840201, end: 19840201
  2. SODIUM IODIDE I 131 [Suspect]
     Dosage: 7938 MBQ, UNK
     Dates: start: 19881001, end: 19881001

REACTIONS (1)
  - CHRONIC MYELOID LEUKAEMIA [None]
